FAERS Safety Report 16630876 (Version 1)
Quarter: 2019Q3

REPORT INFORMATION
  Report Type: Spontaneous
  Country: ES (occurrence: ES)
  Receive Date: 20190725
  Receipt Date: 20190725
  Transmission Date: 20191004
  Serious: Yes (Hospitalization)
  Sender: FDA-Public Use
  Company Number: ES-TEVA-2019-ES-1082067

PATIENT
  Age: 68 Year
  Sex: Female

DRUGS (4)
  1. ATENOLOL (356A) [Interacting]
     Active Substance: ATENOLOL
     Route: 048
     Dates: start: 20160118
  2. RAMIPRIL (2497A) [Interacting]
     Active Substance: RAMIPRIL
     Route: 048
     Dates: start: 20190306, end: 20190624
  3. AMLODIPINO (2503A) [Suspect]
     Active Substance: AMLODIPINE BESYLATE
     Route: 048
     Dates: start: 20190306, end: 20190624
  4. ESPIRONOLACTONA (326A) [Interacting]
     Active Substance: SPIRONOLACTONE
     Route: 048
     Dates: start: 20160118, end: 20190624

REACTIONS (5)
  - Hyperkalaemia [Recovered/Resolved]
  - Drug interaction [Unknown]
  - Condition aggravated [Recovering/Resolving]
  - Acute kidney injury [Recovering/Resolving]
  - Bradycardia [Recovered/Resolved]

NARRATIVE: CASE EVENT DATE: 20190624
